FAERS Safety Report 8773048 (Version 1)
Quarter: 2012Q4

REPORT INFORMATION
  Report Type: 
  Country: US (occurrence: US)
  Receive Date: 20120907
  Receipt Date: 20120907
  Transmission Date: 20130627
  Serious: No
  Sender: FDA-Public Use
  Company Number: US-BAYER-2012-092817

PATIENT

DRUGS (15)
  1. ALEVE CAPLET/TABLET,MIDOL EXTENDED RELIEF CAPLET [Suspect]
     Indication: INFLAMMATION
     Route: 048
  2. LDN [Concomitant]
  3. METHYLPREDNISONE [Concomitant]
  4. FISH OIL [Concomitant]
  5. PROBIOTICS [Concomitant]
  6. VITAMIN C [Concomitant]
  7. VITAMIN D [Concomitant]
  8. MAGNESIUM [Concomitant]
  9. COQ [Concomitant]
  10. ALA [Concomitant]
  11. VITAMIN E [Concomitant]
  12. CALCIUM [Concomitant]
  13. ZANAFLEX [Concomitant]
  14. FLECTOR [Concomitant]
  15. NSAID^S [Concomitant]

REACTIONS (3)
  - Therapeutic response unexpected [None]
  - Oedema [None]
  - Gastritis [None]
